FAERS Safety Report 5417922-5 (Version None)
Quarter: 2007Q3

REPORT INFORMATION
  Report Type: 
  Country: None (occurrence: None)
  Receive Date: 20070817
  Receipt Date: 20070814
  Transmission Date: 20080115
  Serious: Yes (Hospitalization)
  Sender: FDA-Public Use
  Company Number: US-BAYER-200711535BCC

PATIENT
  Age: 74 Year
  Sex: Male
  Weight: 98 kg

DRUGS (18)
  1. ALEVE [Suspect]
     Indication: PAIN
     Dosage: TOTAL DAILY DOSE: 440 MG  UNIT DOSE: 220 MG
     Route: 048
     Dates: start: 20061101, end: 20070201
  2. VERAPAMIL [Concomitant]
     Dosage: TOTAL DAILY DOSE: 480 MG  UNIT DOSE: 240 MG
     Route: 048
  3. GEMFIBROZIL [Concomitant]
     Dosage: TOTAL DAILY DOSE: 1200 MG  UNIT DOSE: 600 MG
     Route: 048
  4. SIMVASTATIN [Concomitant]
     Dosage: TOTAL DAILY DOSE: 40 MG  UNIT DOSE: 40 MG
     Route: 048
  5. LISINOPRIL AND HYDROCHLOROTHIAZIDE [Concomitant]
     Route: 048
     Dates: end: 20070215
  6. DIGITEK [Concomitant]
     Dosage: TOTAL DAILY DOSE: 0.125 MG  UNIT DOSE: 0.125 MG
     Route: 048
  7. WARFARIN [Concomitant]
     Dosage: TOTAL DAILY DOSE: 5 MG  UNIT DOSE: 5 MG
     Route: 048
  8. DOXEPIN HCL [Concomitant]
     Dosage: TOTAL DAILY DOSE: 25 MG  UNIT DOSE: 25 MG
     Route: 048
  9. ATENOLOL [Concomitant]
     Dosage: TOTAL DAILY DOSE: 75 MG  UNIT DOSE: 50 MG
     Route: 048
  10. PENTASA [Concomitant]
     Dosage: TOTAL DAILY DOSE: 4000 MG  UNIT DOSE: 500 MG
     Route: 048
  11. HEMOCYTE [Concomitant]
     Route: 048
  12. CYANOCOBALAMIN [Concomitant]
     Route: 030
  13. CYANOCOBALAMIN [Concomitant]
     Route: 030
  14. PROPOXYPHENE NAPSYLATE AND ACETAMINOPHEN [Concomitant]
     Route: 048
  15. MULTIVITAMIN AND MULTIMINERAL NUTRIENTS [Concomitant]
     Route: 048
  16. GLUCOSAMINE COMPLEX [Concomitant]
     Dosage: TOTAL DAILY DOSE: 2000 MG  UNIT DOSE: 1000 MG
     Route: 048
  17. FOLIC ACID [Concomitant]
     Dosage: TOTAL DAILY DOSE: 800 MG  UNIT DOSE: 800 MG
     Route: 048
  18. FERROUS SULFATE [Concomitant]
     Dosage: TOTAL DAILY DOSE: 27 MG  UNIT DOSE: 27 MG
     Route: 048

REACTIONS (4)
  - CROHN'S DISEASE [None]
  - NAUSEA [None]
  - PAIN [None]
  - PANIC ATTACK [None]
